FAERS Safety Report 7124609-X (Version None)
Quarter: 2010Q4

REPORT INFORMATION
  Report Type: 
  Country: None (occurrence: None)
  Receive Date: 20101129
  Receipt Date: 20101118
  Transmission Date: 20110411
  Serious: Yes (Death, Hospitalization)
  Sender: FDA-Public Use
  Company Number: US-CELGENEUS-163-C5013-06040428

PATIENT
  Age: 71 Year
  Sex: Male
  Weight: 86 kg

DRUGS (6)
  1. CC-5013 [Suspect]
     Indication: MULTIPLE MYELOMA
     Route: 048
     Dates: start: 20060210, end: 20060330
  2. DEXAMETHASONE [Suspect]
     Indication: MULTIPLE MYELOMA
     Route: 048
     Dates: start: 20060210, end: 20060329
  3. ASA [Concomitant]
     Route: 065
  4. LEVOFLOXACIN [Concomitant]
     Indication: PROPHYLAXIS
     Route: 065
  5. ZOMETA [Concomitant]
     Route: 051
  6. ZOMETA [Concomitant]
     Route: 051

REACTIONS (6)
  - BLOOD CREATININE INCREASED [None]
  - CLOSTRIDIUM DIFFICILE COLITIS [None]
  - PNEUMONIA [None]
  - PNEUMONITIS [None]
  - PNEUMOTHORAX [None]
  - SEPSIS [None]
